FAERS Safety Report 8615112-6 (Version None)
Quarter: 2012Q3

REPORT INFORMATION
  Report Type: 
  Country: None (occurrence: None)
  Receive Date: 20120823
  Receipt Date: 20120816
  Transmission Date: 20120928
  Serious: Yes (Other)
  Sender: FDA-Public Use
  Company Number: PR-ABBOTT-12P-131-0926526-00

PATIENT
  Sex: Female
  Weight: 47.67 kg

DRUGS (3)
  1. PLAQUENIL [Concomitant]
     Indication: RHEUMATOID ARTHRITIS
     Dosage: 300MG DAILY, 1.5 TABLETS DAILY
     Route: 048
     Dates: start: 20040101
  2. HUMIRA [Suspect]
     Indication: RHEUMATOID ARTHRITIS
     Route: 058
     Dates: start: 20120101, end: 20120726
  3. HUMIRA [Suspect]
     Dates: start: 20120816

REACTIONS (4)
  - PROTEINURIA [None]
  - CARTILAGE INJURY [None]
  - WHITE BLOOD CELL COUNT INCREASED [None]
  - SURGERY [None]
